FAERS Safety Report 5146828-4 (Version None)
Quarter: 2006Q4

REPORT INFORMATION
  Report Type: 
  Country: None (occurrence: None)
  Receive Date: 20061109
  Receipt Date: 20061012
  Transmission Date: 20070319
  Serious: Yes (Other)
  Sender: FDA-Public Use
  Company Number: PHMT2006CA01959

PATIENT
  Age: 60 Year
  Sex: Female
  Weight: 76 kg

DRUGS (4)
  1. ALTACE [Concomitant]
     Dosage: 10MG OD
  2. LOZIDE [Concomitant]
     Dosage: 1.25 MG QD
  3. SOLU-MEDROL [Concomitant]
     Dosage: UNK, UNK
     Route: 042
     Dates: start: 20061010, end: 20061010
  4. FAMVIR [Suspect]
     Indication: HERPES ZOSTER
     Dosage: 500 MG TID
     Route: 048
     Dates: start: 20060901, end: 20060901

REACTIONS (6)
  - ANGIONEUROTIC OEDEMA [None]
  - CIRCUMORAL OEDEMA [None]
  - HERPES SIMPLEX [None]
  - PRURITUS [None]
  - SWELLING FACE [None]
  - URTICARIA [None]
